FAERS Safety Report 16889930 (Version 2)
Quarter: 2019Q4

REPORT INFORMATION
  Report Type: Spontaneous
  Country: JP (occurrence: JP)
  Receive Date: 20191007
  Receipt Date: 20191108
  Transmission Date: 20200122
  Serious: Yes (Other)
  Sender: FDA-Public Use
  Company Number: JP-SA-2019SA272739

PATIENT
  Age: 70 Year
  Sex: Male

DRUGS (3)
  1. CISPLATIN. [Concomitant]
     Active Substance: CISPLATIN
     Indication: OESOPHAGEAL CARCINOMA
     Dosage: 70 MG/M2
     Route: 065
  2. DOCETAXEL. [Suspect]
     Active Substance: DOCETAXEL
     Indication: OESOPHAGEAL CARCINOMA
     Dosage: 70 MG/M2
     Route: 041
  3. FLUOROURACIL. [Suspect]
     Active Substance: FLUOROURACIL
     Indication: OESOPHAGEAL CARCINOMA
     Dosage: 700 MG/M2
     Route: 065

REACTIONS (5)
  - Diarrhoea [Unknown]
  - Hyperammonaemia [Recovered/Resolved]
  - Altered state of consciousness [Recovered/Resolved]
  - Malaise [Recovered/Resolved]
  - Neutrophil count decreased [Unknown]
